FAERS Safety Report 6341615-3 (Version None)
Quarter: 2009Q3

REPORT INFORMATION
  Report Type: 
  Country: None (occurrence: None)
  Receive Date: 20090904
  Receipt Date: 20090827
  Transmission Date: 20100115
  Serious: Yes (Hospitalization)
  Sender: FDA-Public Use
  Company Number: DE-JNJFOC-20090808411

PATIENT
  Age: 47 Year
  Sex: Female
  Weight: 83 kg

DRUGS (9)
  1. INVEGA [Suspect]
     Indication: DRUG USE FOR UNKNOWN INDICATION
     Route: 048
  2. ALPRAZOLAM [Suspect]
     Indication: DEPRESSION
     Route: 048
  3. CITALOPRAM HYDROBROMIDE [Suspect]
     Indication: DEPRESSION
     Route: 048
  4. LYRICA [Suspect]
     Indication: FIBROMYALGIA
     Route: 048
  5. PALLADONE [Suspect]
     Indication: FIBROMYALGIA
     Route: 048
  6. PANTOZOL [Suspect]
     Indication: GASTRITIS
     Route: 048
  7. BEFIBRAT [Concomitant]
     Indication: DRUG USE FOR UNKNOWN INDICATION
     Route: 048
  8. LACTULOSE [Concomitant]
     Indication: INTESTINAL FUNCTIONAL DISORDER
     Route: 048
  9. VITAMIN B COMPLEX CAP [Concomitant]
     Indication: VITAMIN B6 DEFICIENCY
     Route: 048

REACTIONS (1)
  - CONSTIPATION [None]
